FAERS Safety Report 8941524 (Version 2)
Quarter: 2012Q4

REPORT INFORMATION
  Report Type: 
  Country: US (occurrence: US)
  Receive Date: 20121121
  Receipt Date: 20121212
  Transmission Date: 20130627
  Serious: Yes (Death, Hospitalization)
  Sender: FDA-Public Use
  Company Number: US-ASTELLAS-1115106

PATIENT
  Age: 79 Year
  Sex: Female

DRUGS (1)
  1. TARCEVA [Suspect]
     Indication: LUNG NEOPLASM MALIGNANT
     Dosage: Daily
     Route: 048
     Dates: start: 20051207, end: 20051214

REACTIONS (2)
  - Pulmonary embolism [Recovered/Resolved]
  - Lung neoplasm malignant [Fatal]
